FAERS Safety Report 17744914 (Version 2)
Quarter: 2021Q4

REPORT INFORMATION
  Report Type: Report from Study
  Country: AE (occurrence: AE)
  Receive Date: 20200505
  Receipt Date: 20211213
  Transmission Date: 20220303
  Serious: Yes (Hospitalization, Other)
  Sender: FDA-Public Use
  Company Number: AE-TAKEDA-2020TUS020714

PATIENT
  Age: 36 Year
  Sex: Male

DRUGS (1)
  1. VEDOLIZUMAB [Suspect]
     Active Substance: VEDOLIZUMAB
     Indication: Colitis ulcerative
     Dosage: 300 MILLIGRAM, Q4WEEKS
     Route: 042
     Dates: start: 20190203

REACTIONS (4)
  - Appendix disorder [Unknown]
  - Crohn^s disease [Unknown]
  - Testis cancer [Unknown]
  - Off label use [Unknown]

NARRATIVE: CASE EVENT DATE: 20190203
